FAERS Safety Report 5933507-6 (Version None)
Quarter: 2008Q4

REPORT INFORMATION
  Report Type: 
  Country: None (occurrence: None)
  Receive Date: 20081029
  Receipt Date: 20081022
  Transmission Date: 20090506
  Serious: Yes (Hospitalization)
  Sender: FDA-Public Use
  Company Number: GB-RANBAXY-2008RR-18838

PATIENT
  Age: 69 Year
  Sex: Male
  Weight: 70 kg

DRUGS (8)
  1. CO-AMILOFRUSE [Suspect]
     Indication: POLYURIA
     Dosage: UNK
     Dates: start: 20080201
  2. PERINDOPRIL [Suspect]
     Indication: CARDIAC DISORDER
     Dosage: 2 MG, QD
     Dates: start: 20080201
  3. ASPIRIN [Concomitant]
     Indication: CORONARY ARTERY BYPASS
     Dosage: 75 MG, QD
     Dates: start: 20080201
  4. BISOPROLOL FUMARATE [Concomitant]
     Indication: CORONARY ARTERY BYPASS
     Dosage: 2.5 MG, QD
  5. CLOPIDOGREL [Concomitant]
     Indication: CORONARY ARTERY BYPASS
     Dosage: 75 MG, QD
     Dates: start: 20080101
  6. CO-AMILOFRUSE [Concomitant]
  7. OMEPRAZOLE [Concomitant]
     Indication: CORONARY ARTERY BYPASS
     Dosage: 20 MG, QD
     Dates: start: 20080101
  8. PERINDOPRIL [Concomitant]

REACTIONS (5)
  - BLOOD CREATININE ABNORMAL [None]
  - BLOOD POTASSIUM ABNORMAL [None]
  - BLOOD UREA ABNORMAL [None]
  - HAEMOGLOBIN ABNORMAL [None]
  - HYPOTENSION [None]
